FAERS Safety Report 7605509-5 (Version None)
Quarter: 2011Q3

REPORT INFORMATION
  Report Type: 
  Country: None (occurrence: None)
  Receive Date: 20110713
  Receipt Date: 20110711
  Transmission Date: 20111222
  Serious: Yes (Disabling)
  Sender: FDA-Public Use
  Company Number: US-PFIZER INC-2011145588

PATIENT
  Sex: Female

DRUGS (2)
  1. LYRICA [Suspect]
     Indication: FIBROMYALGIA
     Dosage: UNK
     Route: 048
     Dates: start: 20100201
  2. DEXAMETHASONE [Concomitant]
     Indication: ECZEMA
     Dosage: UNK
     Route: 061

REACTIONS (5)
  - INCORRECT DOSE ADMINISTERED [None]
  - SKIN DISORDER [None]
  - INFLUENZA [None]
  - ORAL PAIN [None]
  - DIZZINESS [None]
